FAERS Safety Report 9284829 (Version 2)
Quarter: 2013Q3

REPORT INFORMATION
  Report Type: Report from Study
  Country: PL (occurrence: PL)
  Receive Date: 20130513
  Receipt Date: 20130712
  Transmission Date: 20140515
  Serious: Yes (Death, Other)
  Sender: FDA-Public Use
  Company Number: PL-ROCHE-1222057

PATIENT
  Age: 46 Year
  Sex: Female
  Weight: 70 kg

DRUGS (3)
  1. HERCEPTIN [Suspect]
     Indication: BREAST CANCER METASTATIC
     Route: 042
     Dates: start: 200912, end: 201208
  2. PACLITAXEL [Suspect]
     Indication: BREAST CANCER METASTATIC
     Route: 042
     Dates: start: 200912, end: 201004
  3. CAPECITABINE [Suspect]
     Indication: BREAST CANCER METASTATIC
     Route: 065

REACTIONS (7)
  - Death [Fatal]
  - Disease progression [Unknown]
  - Gastrointestinal haemorrhage [Unknown]
  - Polyneuropathy [Not Recovered/Not Resolved]
  - Anaemia [Unknown]
  - Abdominal neoplasm [Unknown]
  - Jaundice cholestatic [Unknown]
